FAERS Safety Report 14525893 (Version 1)
Quarter: 2018Q1

REPORT INFORMATION
  Report Type: Spontaneous
  Country: US (occurrence: US)
  Receive Date: 20180211
  Receipt Date: 20180211
  Transmission Date: 20180509
  Serious: Yes (Life-Threatening, Hospitalization, Other)
  Sender: FDA-Public Use
  Company Number: None

PATIENT
  Sex: Male
  Weight: 76.5 kg

DRUGS (19)
  1. ARICEPT [Concomitant]
     Active Substance: DONEPEZIL HYDROCHLORIDE
  2. MAGNESIUM/CALCIUM MULTIVITAMIN [Concomitant]
  3. ALLOPURINOL. [Concomitant]
     Active Substance: ALLOPURINOL
  4. LUNESTA [Concomitant]
     Active Substance: ESZOPICLONE
  5. ATIVAN [Suspect]
     Active Substance: LORAZEPAM
     Indication: CONTRAINDICATED PRODUCT ADMINISTERED
     Dates: start: 20180101, end: 20180101
  6. DEPO-TESTOSTERONE [Concomitant]
     Active Substance: TESTOSTERONE CYPIONATE
  7. FOLIC ACID. [Concomitant]
     Active Substance: FOLIC ACID
  8. INDOMETHACIN. [Concomitant]
     Active Substance: INDOMETHACIN
  9. LOSARTAN POTASSIUM. [Concomitant]
     Active Substance: LOSARTAN POTASSIUM
  10. ZINC. [Concomitant]
     Active Substance: ZINC
  11. XANAX XR [Concomitant]
     Active Substance: ALPRAZOLAM
  12. B-MULTI VITAMIN [Concomitant]
  13. SEROQUEL [Concomitant]
     Active Substance: QUETIAPINE FUMARATE
  14. COLCRYS [Concomitant]
     Active Substance: COLCHICINE
  15. SOLU-CORTEF HYDROCORTISONE [Concomitant]
  16. RELPAX [Concomitant]
     Active Substance: ELETRIPTAN HYDROBROMIDE
  17. D3 MULTIVITAMIN [Concomitant]
  18. HYDROMORPHONE [Concomitant]
     Active Substance: HYDROMORPHONE
  19. THIAMINE. [Concomitant]
     Active Substance: THIAMINE

REACTIONS (7)
  - Hypotension [None]
  - Victim of crime [None]
  - Contraindicated product administered [None]
  - Shock [None]
  - Memory impairment [None]
  - Tachycardia [None]
  - Myocardial infarction [None]

NARRATIVE: CASE EVENT DATE: 20180101
